FAERS Safety Report 5636666-8 (Version None)
Quarter: 2008Q1

REPORT INFORMATION
  Report Type: 
  Country: None (occurrence: None)
  Receive Date: 20080220
  Receipt Date: 20080208
  Transmission Date: 20080703
  Serious: Yes (Life-Threatening, Hospitalization)
  Sender: FDA-Public Use
  Company Number: E2090-00359-SPO-JP

PATIENT
  Age: 15 Year
  Sex: Male

DRUGS (5)
  1. ZONISAMIDE [Suspect]
     Indication: EPILEPSY
     Dosage: 300 MG, ORAL
     Route: 048
     Dates: start: 20070831, end: 20071008
  2. CLARITHROMYCIN [Concomitant]
  3. CALONAL (PARACETAMOL) [Concomitant]
  4. FLAVERIC (BENPROPERINE PHOSPHATE) [Concomitant]
  5. HOKUNALIN TAPE (TULOBUTEROL) [Concomitant]

REACTIONS (7)
  - ALANINE AMINOTRANSFERASE INCREASED [None]
  - ASPARTATE AMINOTRANSFERASE INCREASED [None]
  - DRUG RASH WITH EOSINOPHILIA AND SYSTEMIC SYMPTOMS [None]
  - EXFOLIATIVE RASH [None]
  - GENERAL PHYSICAL HEALTH DETERIORATION [None]
  - HUMAN HERPESVIRUS 6 INFECTION [None]
  - NASOPHARYNGITIS [None]
